FAERS Safety Report 22273809 (Version 1)
Quarter: 2023Q2

REPORT INFORMATION
  Report Type: Spontaneous
  Country: FR (occurrence: FR)
  Receive Date: 20230502
  Receipt Date: 20230502
  Transmission Date: 20230721
  Serious: Yes (Hospitalization)
  Sender: FDA-Public Use
  Company Number: None

PATIENT
  Age: 76 Year
  Sex: Male
  Weight: 49 kg

DRUGS (12)
  1. ESCITALOPRAM [Interacting]
     Active Substance: ESCITALOPRAM OXALATE
     Indication: Mental disorder
     Dosage: 10 MILLIGRAM, QD
     Route: 048
     Dates: end: 20230306
  2. FLUINDIONE [Interacting]
     Active Substance: FLUINDIONE
     Indication: Atrial fibrillation
     Dosage: 15 MILLIGRAM, QD
     Route: 048
     Dates: end: 20230306
  3. TRELEGY ELLIPTA [Concomitant]
     Active Substance: FLUTICASONE FUROATE\UMECLIDINIUM BROMIDE\VILANTEROL TRIFENATATE
     Dosage: 1 DOSAGE FORM, QD
     Route: 055
     Dates: end: 20230306
  4. TERBUTALINE [Concomitant]
     Active Substance: TERBUTALINE
     Dosage: 10 MILLIGRAM
     Route: 055
     Dates: end: 20230306
  5. POLARAMINE [Concomitant]
     Active Substance: DEXCHLORPHENIRAMINE MALEATE
     Dosage: 2 MILLIGRAM, QD
     Route: 048
     Dates: end: 20230306
  6. PANTOPRAZOLE [Concomitant]
     Active Substance: PANTOPRAZOLE
     Dosage: 20 MILLIGRAM, QD
     Route: 048
     Dates: end: 20230306
  7. ACETAMINOPHEN [Concomitant]
     Active Substance: ACETAMINOPHEN
     Dosage: 2 GRAM, AS NECESSARY
     Route: 048
     Dates: end: 20230306
  8. ETIFOXINE [Concomitant]
     Active Substance: ETIFOXINE
     Dosage: 150 MILLIGRAM, QD
     Route: 048
     Dates: end: 20230306
  9. ALFUZOSIN [Concomitant]
     Active Substance: ALFUZOSIN
     Dosage: UNK
     Route: 048
     Dates: end: 20230306
  10. ATROVENT [Concomitant]
     Active Substance: IPRATROPIUM BROMIDE
     Dosage: 2 DOSAGE FORM, AS NECESSARY
     Route: 055
     Dates: end: 20230306
  11. FUROSEMIDE [Concomitant]
     Active Substance: FUROSEMIDE
     Dosage: 500 MILLIGRAM, QD
     Route: 048
     Dates: end: 20230306
  12. ATORVASTATIN [Concomitant]
     Active Substance: ATORVASTATIN
     Dosage: 10 MILLIGRAM, QD
     Route: 048
     Dates: end: 20230306

REACTIONS (2)
  - Subcapsular splenic haematoma [Recovering/Resolving]
  - Drug interaction [Recovering/Resolving]

NARRATIVE: CASE EVENT DATE: 20230306
